FAERS Safety Report 7602963-X (Version None)
Quarter: 2011Q3

REPORT INFORMATION
  Report Type: 
  Country: None (occurrence: None)
  Receive Date: 20110712
  Receipt Date: 20110407
  Transmission Date: 20111222
  Serious: No
  Sender: FDA-Public Use
  Company Number: A0922692A

PATIENT
  Sex: Male

DRUGS (1)
  1. JALYN [Suspect]

REACTIONS (2)
  - FATIGUE [None]
  - INFLUENZA LIKE ILLNESS [None]
